FAERS Safety Report 4723978-5 (Version None)
Quarter: 2005Q3

REPORT INFORMATION
  Report Type: 
  Country: None (occurrence: None)
  Receive Date: 20050725
  Receipt Date: 20050627
  Transmission Date: 20060218
  Serious: Yes (Hospitalization)
  Sender: FDA-Public Use
  Company Number: FR-ABBOTT-05P-056-0304204-00

PATIENT
  Sex: Female

DRUGS (5)
  1. DEPAKOTE [Suspect]
     Indication: MANIA
     Route: 048
     Dates: start: 20050612, end: 20050612
  2. DEPAKOTE [Suspect]
     Route: 048
     Dates: start: 20050613, end: 20050619
  3. DEPAKOTE [Suspect]
     Route: 048
     Dates: start: 20050620, end: 20050623
  4. LOXAPINE SUCCINATE [Concomitant]
     Indication: DRUG USE FOR UNKNOWN INDICATION
     Route: 048
     Dates: start: 20050610
  5. CLONAZEPAM [Concomitant]
     Indication: DRUG USE FOR UNKNOWN INDICATION
     Route: 048
     Dates: start: 20050610

REACTIONS (3)
  - DRUG INEFFECTIVE [None]
  - DYSTHYMIC DISORDER [None]
  - NEUTROPENIA [None]
